FAERS Safety Report 6344490-6 (Version None)
Quarter: 2009Q3

REPORT INFORMATION
  Report Type: 
  Country: None (occurrence: None)
  Receive Date: 20090908
  Receipt Date: 20090825
  Transmission Date: 20100115
  Serious: Yes (Other)
  Sender: FDA-Public Use
  Company Number: ES-PFIZER INC-2009259779

PATIENT
  Age: 57 Year

DRUGS (3)
  1. DALACIN [Suspect]
     Indication: OSTEOMYELITIS
     Dosage: UNK
     Route: 048
     Dates: start: 20090701
  2. ULTRA LEVURA [Concomitant]
     Indication: PROPHYLAXIS
     Dosage: UNK
  3. CIPROFLOXACIN [Concomitant]
     Indication: COLITIS ULCERATIVE
     Dosage: UNK

REACTIONS (1)
  - DIARRHOEA HAEMORRHAGIC [None]
